FAERS Safety Report 13587146 (Version 1)
Quarter: 2017Q2

REPORT INFORMATION
  Report Type: Report from Study
  Country: None (occurrence: JP)
  Receive Date: 20170526
  Receipt Date: 20170526
  Transmission Date: 20170830
  Serious: Yes (Death)
  Sender: FDA-Public Use
  Company Number: JP-ABBVIE-17P-087-1885516-00

PATIENT
  Age: 88 Year
  Sex: Male
  Weight: 53 kg

DRUGS (10)
  1. VIEKIRAX [Suspect]
     Active Substance: OMBITASVIR\PARITAPREVIR\RITONAVIR
     Indication: HEPATIC CIRRHOSIS
  2. PROHEPARUM [Concomitant]
     Active Substance: CHOLINE BITARTRATE\CYSTEINE\INOSITOL\MAMMAL LIVER
     Indication: CHRONIC HEPATITIS C
     Dosage: 3 DOSAGE FORMS DAILY
     Route: 048
  3. HANP [Suspect]
     Active Substance: CARPERITIDE
     Indication: PRODUCT USED FOR UNKNOWN INDICATION
     Route: 041
     Dates: start: 20161003, end: 20161005
  4. FEBUXOSTAT. [Concomitant]
     Active Substance: FEBUXOSTAT
     Indication: HYPERURICAEMIA
     Dosage: 10 MG DAILY
     Route: 048
  5. SOLITA-T1 [Concomitant]
     Indication: RENAL IMPAIRMENT
  6. URSODEOXYCHOLIC ACID [Concomitant]
     Active Substance: URSODIOL
     Indication: CHRONIC HEPATITIS C
     Dosage: 300 MG DAILY
     Route: 048
     Dates: end: 20160727
  7. ALDACTONE-A [Suspect]
     Active Substance: SPIRONOLACTONE
     Indication: HYPERTENSION
     Dosage: 25 MG DAILY
     Route: 048
     Dates: end: 20160720
  8. LASIX [Suspect]
     Active Substance: FUROSEMIDE
     Indication: HYPERTENSION
     Dosage: 10 MG DAILY
     Route: 048
     Dates: end: 20160720
  9. VIEKIRAX [Suspect]
     Active Substance: OMBITASVIR\PARITAPREVIR\RITONAVIR
     Indication: VIRAEMIA
     Route: 048
     Dates: start: 20160706, end: 20160927
  10. VIEKIRAX [Suspect]
     Active Substance: OMBITASVIR\PARITAPREVIR\RITONAVIR
     Indication: CHRONIC HEPATITIS C

REACTIONS (7)
  - Blood bilirubin increased [Recovered/Resolved]
  - Necrosis [Fatal]
  - Sepsis [Fatal]
  - Renal impairment [Recovered/Resolved]
  - Cardiac failure [Fatal]
  - Peripheral artery stenosis [Fatal]
  - Cerebral artery embolism [Fatal]

NARRATIVE: CASE EVENT DATE: 20160713
